FAERS Safety Report 7465761-6 (Version None)
Quarter: 2011Q2

REPORT INFORMATION
  Report Type: 
  Country: None (occurrence: None)
  Receive Date: 20110509
  Receipt Date: 20110429
  Transmission Date: 20111010
  Serious: Yes (Hospitalization)
  Sender: FDA-Public Use
  Company Number: DE-ASTRAZENECA-2011SE24389

PATIENT
  Age: 16 Year
  Sex: Male

DRUGS (2)
  1. SEROQUEL XR [Suspect]
     Route: 048
     Dates: start: 20110419, end: 20110419
  2. RITALIN [Concomitant]

REACTIONS (5)
  - ERYTHEMA MULTIFORME [None]
  - OESOPHAGITIS [None]
  - LEUKOPENIA [None]
  - SUICIDE ATTEMPT [None]
  - OVERDOSE [None]
